FAERS Safety Report 5062578-7 (Version None)
Quarter: 2006Q3

REPORT INFORMATION
  Report Type: 
  Country: None (occurrence: None)
  Receive Date: 20060721
  Receipt Date: 20060706
  Transmission Date: 20061208
  Serious: Yes (Other)
  Sender: FDA-Public Use
  Company Number: 2006-06-1427

PATIENT
  Age: 31 Year
  Sex: Male

DRUGS (3)
  1. CLARITIN [Suspect]
     Indication: DERMATITIS
     Dosage: 10 MG ORAL
     Route: 048
     Dates: start: 20060617, end: 20060619
  2. DERMOVATE CREAM [Concomitant]
  3. CELESTONE [Suspect]
     Indication: DERMATITIS
     Dosage: ORAL
     Route: 048
     Dates: start: 20060617, end: 20060619

REACTIONS (1)
  - ERYTHEMA MULTIFORME [None]
